FAERS Safety Report 7647263-7 (Version None)
Quarter: 2011Q3

REPORT INFORMATION
  Report Type: 
  Country: None (occurrence: None)
  Receive Date: 20110729
  Receipt Date: 20110729
  Transmission Date: 20111222
  Serious: Yes (Life-Threatening)
  Sender: FDA-Public Use
  Company Number: None

PATIENT
  Age: 55 Year
  Sex: Male
  Weight: 88.3 kg

DRUGS (1)
  1. REGADENOSON [Suspect]
     Indication: SCAN MYOCARDIAL PERFUSION
     Dosage: 0.4 MG ONCE IV
     Route: 042
     Dates: start: 20110317, end: 20110317

REACTIONS (2)
  - HYPERTENSION [None]
  - BRONCHOSPASM [None]
